FAERS Safety Report 24842299 (Version 2)
Quarter: 2025Q2

REPORT INFORMATION
  Report Type: Spontaneous
  Country: US (occurrence: US)
  Receive Date: 20250115
  Receipt Date: 20250421
  Transmission Date: 20250716
  Serious: No
  Sender: SANOFI AVENTIS
  Company Number: US-SA-2025SA011309

PATIENT
  Age: 26 Year
  Sex: Female
  Weight: 69.55 kg

DRUGS (8)
  1. DUPIXENT [Suspect]
     Active Substance: DUPILUMAB
     Indication: Illness
     Dosage: 300 MG, QOW
     Route: 058
  2. DUPIXENT [Suspect]
     Active Substance: DUPILUMAB
     Indication: Dermatitis atopic
  3. LAMOTRIGINE [Concomitant]
     Active Substance: LAMOTRIGINE
  4. BUPROPION [Concomitant]
     Active Substance: BUPROPION
  5. LEXAPRO [Concomitant]
     Active Substance: ESCITALOPRAM OXALATE
  6. EPIPEN [Concomitant]
     Active Substance: EPINEPHRINE
  7. PRAZOSIN [Concomitant]
     Active Substance: PRAZOSIN
  8. CLONIDINE [Concomitant]
     Active Substance: CLONIDINE

REACTIONS (3)
  - Condition aggravated [Recovered/Resolved]
  - Product dose omission issue [Recovered/Resolved]
  - Maternal exposure during pregnancy [Unknown]
